FAERS Safety Report 9369880 (Version 1)
Quarter: 2013Q2

REPORT INFORMATION
  Report Type: Spontaneous
  Country: US (occurrence: US)
  Receive Date: 20130626
  Receipt Date: 20130626
  Transmission Date: 20140414
  Serious: Yes (Death, Other)
  Sender: FDA-Public Use
  Company Number: US-PFIZER INC-2013187568

PATIENT
  Age: 65 Year
  Sex: Male

DRUGS (13)
  1. REVATIO [Suspect]
     Indication: HYPERTENSION
     Dosage: UNK, 3X/DAY
     Route: 048
  2. INSULIN [Concomitant]
     Dosage: UNK
  3. BACTRIM [Concomitant]
     Dosage: UNK
  4. BENADRYL [Concomitant]
     Dosage: UNK
  5. LASIX [Concomitant]
     Dosage: UNK
  6. RESTORIL [Concomitant]
     Dosage: UNK
  7. LEVAQUIN [Concomitant]
     Dosage: UNK
  8. SOLU-MEDROL [Concomitant]
     Dosage: UNK
  9. PREDNISONE [Concomitant]
     Dosage: UNK
  10. PROGRAF [Concomitant]
     Dosage: UNK
  11. BRETHINE [Concomitant]
     Dosage: UNK
  12. VALCYTE [Concomitant]
     Dosage: UNK
  13. ASPIRIN [Concomitant]
     Dosage: UNK

REACTIONS (1)
  - Cardiac arrest [Fatal]
